FAERS Safety Report 4358278-9 (Version None)
Quarter: 2004Q2

REPORT INFORMATION
  Report Type: 
  Country: None (occurrence: None)
  Receive Date: 20040514
  Receipt Date: 20040503
  Transmission Date: 20050107
  Serious: Yes (Hospitalization)
  Sender: FDA-Public Use
  Company Number: US-BRISTOL-MYERS SQUIBB COMPANY-12576716

PATIENT
  Age: 56 Year
  Sex: Male

DRUGS (8)
  1. AZTREONAM [Suspect]
  2. LINEZOLID [Interacting]
  3. DIPHENHYDRAMINE HCL [Interacting]
     Route: 042
  4. METRONIDAZOLE [Suspect]
  5. INSULIN [Concomitant]
  6. ROSIGLITAZONE MALEATE [Concomitant]
  7. CLOPIDOGREL BISULFATE [Concomitant]
  8. RAMIPRIL [Concomitant]

REACTIONS (6)
  - AGGRESSION [None]
  - DELIRIUM [None]
  - DRUG INTERACTION [None]
  - HALLUCINATIONS, MIXED [None]
  - PARANOIA [None]
  - TACHYCARDIA [None]
